FAERS Safety Report 9411498 (Version 1)
Quarter: 2013Q3

REPORT INFORMATION
  Report Type: Spontaneous
  Country: AT (occurrence: AT)
  Receive Date: 20130722
  Receipt Date: 20130722
  Transmission Date: 20140515
  Serious: Yes (Other)
  Sender: FDA-Public Use
  Company Number: AT-JNJFOC-20130706293

PATIENT
  Age: 42 Year
  Sex: Male

DRUGS (2)
  1. REGAINE [Suspect]
     Route: 061
  2. REGAINE [Suspect]
     Indication: PRODUCT USED FOR UNKNOWN INDICATION
     Route: 061
     Dates: start: 201305

REACTIONS (2)
  - Folliculitis [Not Recovered/Not Resolved]
  - Pain of skin [Not Recovered/Not Resolved]
